FAERS Safety Report 10096581 (Version 1)
Quarter: 2014Q2

REPORT INFORMATION
  Report Type: Spontaneous
  Country: US (occurrence: None)
  Receive Date: 20140421
  Receipt Date: 20140421
  Transmission Date: 20141212
  Serious: Yes (Other)
  Sender: FDA-Public Use
  Company Number: None

PATIENT
  Age: 66 Year
  Sex: Female
  Weight: 64.41 kg

DRUGS (1)
  1. FORTEO [Suspect]
     Indication: OSTEOPOROSIS
     Dosage: 20MCG, QD, SUBCUTANEOUS
     Route: 058
     Dates: start: 20140122, end: 20140418

REACTIONS (2)
  - Cholelithiasis [None]
  - Lymphadenopathy [None]
